FAERS Safety Report 17460420 (Version 1)
Quarter: 2020Q1

REPORT INFORMATION
  Report Type: Spontaneous
  Country: US (occurrence: US)
  Receive Date: 20200212
  Receipt Date: 20200212
  Transmission Date: 20200409
  Serious: Yes (Hospitalization)
  Sender: FDA-Public Use
  Company Number: None

PATIENT
  Age: 64 Year
  Sex: Female
  Weight: 59.4 kg

DRUGS (2)
  1. ESTROGEN PROGESTERONE TESTOSTERONE PELLET [Suspect]
     Active Substance: ESTROGENS\PROGESTERONE\TESTOSTERONE
     Indication: FATIGUE
     Route: 058
     Dates: start: 20200131
  2. ESTROGEN PROGESTERONE TESTOSTERONE PELLET [Suspect]
     Active Substance: ESTROGENS\PROGESTERONE\TESTOSTERONE
     Indication: HEADACHE

REACTIONS (7)
  - Hemiparesis [None]
  - Fatigue [None]
  - Chills [None]
  - Streptococcus test positive [None]
  - Headache [None]
  - Dysarthria [None]
  - Cerebral infarction [None]
